FAERS Safety Report 24437347 (Version 1)
Quarter: 2024Q4

REPORT INFORMATION
  Report Type: Spontaneous
  Country: US (occurrence: US)
  Receive Date: 20241015
  Receipt Date: 20241015
  Transmission Date: 20250115
  Serious: Yes (Other)
  Sender: CHEPLAPHARM
  Company Number: US-ASTRAZENECA-202410GLO002114US

PATIENT
  Age: 66 Year
  Sex: Male

DRUGS (4)
  1. QUETIAPINE [Suspect]
     Active Substance: QUETIAPINE
     Indication: Chorea
     Dosage: 25?100 MG FOR 13 DAYS
  2. CLONAZEPAM [Suspect]
     Active Substance: CLONAZEPAM
     Indication: Chorea
     Dosage: BID?DAILY DOSE: 1 GRAM
  3. VALPROIC ACID [Suspect]
     Active Substance: VALPROIC ACID
     Indication: Chorea
     Dosage: 1000-2250MG
  4. RISPERIDONE [Suspect]
     Active Substance: RISPERIDONE
     Indication: Chorea
     Dosage: 0.25?2 MG FOR 12 DAYS

REACTIONS (2)
  - Gastrointestinal haemorrhage [Unknown]
  - Off label use [Unknown]
